FAERS Safety Report 7214396-9 (Version None)
Quarter: 2011Q1

REPORT INFORMATION
  Report Type: 
  Country: None (occurrence: None)
  Receive Date: 20110107
  Receipt Date: 20101230
  Transmission Date: 20110831
  Serious: Yes (Other)
  Sender: FDA-Public Use
  Company Number: PHHY2010US89435

PATIENT
  Sex: Female

DRUGS (2)
  1. LOPRESSOR [Suspect]
  2. DIOVAN HCT [Suspect]
     Dosage: 80/12.5 (1 PER DAY)

REACTIONS (2)
  - BLOOD PRESSURE INCREASED [None]
  - DRUG INEFFECTIVE [None]
